FAERS Safety Report 4970642-3 (Version None)
Quarter: 2006Q2

REPORT INFORMATION
  Report Type: 
  Country: None (occurrence: None)
  Receive Date: 20060412
  Receipt Date: 20060404
  Transmission Date: 20061013
  Serious: Yes (Other)
  Sender: FDA-Public Use
  Company Number: PHBS2006JP05129

PATIENT
  Age: 83 Year
  Sex: Female

DRUGS (5)
  1. LUDIOMIL [Suspect]
     Indication: DEPRESSION
     Dosage: 10 MG, TID
     Route: 048
     Dates: start: 19990820, end: 20060306
  2. DEPAS [Suspect]
     Dosage: 0.5 MG/D
     Route: 048
     Dates: start: 19990820, end: 20060306
  3. TENORMIN [Suspect]
     Route: 048
     Dates: start: 19990820
  4. JUVELA [Concomitant]
  5. CYANOCOBALAMIN [Concomitant]

REACTIONS (5)
  - HAEMATOCRIT DECREASED [None]
  - HAEMOGLOBIN DECREASED [None]
  - PANCYTOPENIA [None]
  - RED BLOOD CELL COUNT DECREASED [None]
  - WHITE BLOOD CELL COUNT DECREASED [None]
